FAERS Safety Report 21929958 (Version 1)
Quarter: 2023Q1

REPORT INFORMATION
  Report Type: Spontaneous
  Country: DE (occurrence: DE)
  Receive Date: 20230131
  Receipt Date: 20230131
  Transmission Date: 20230417
  Serious: Yes (Death, Other)
  Sender: FDA-Public Use
  Company Number: DE-STERISCIENCE B.V.-2023-ST-000366

PATIENT
  Age: 71 Year
  Sex: Male

DRUGS (10)
  1. PIPERACILLIN SODIUM\TAZOBACTAM SODIUM [Suspect]
     Active Substance: PIPERACILLIN SODIUM\TAZOBACTAM SODIUM
     Indication: Paraneoplastic pemphigus
     Dosage: 4.5 GRAM, QID
     Dates: start: 2021
  2. MEROPENEM [Suspect]
     Active Substance: MEROPENEM
     Indication: Paraneoplastic pemphigus
     Dosage: UNK
     Dates: start: 2021
  3. GANCICLOVIR SODIUM [Suspect]
     Active Substance: GANCICLOVIR SODIUM
     Indication: Paraneoplastic pemphigus
     Dosage: UNK
     Dates: start: 2021
  4. PREDNISOLONE [Suspect]
     Active Substance: PREDNISOLONE
     Indication: Paraneoplastic pemphigus
     Dosage: 500 MILLIGRAM, QD
     Route: 042
     Dates: start: 2021
  5. CEFTRIAXONE [Suspect]
     Active Substance: CEFTRIAXONE
     Indication: Paraneoplastic pemphigus
     Dosage: 2 GRAM, QD
     Dates: start: 2021
  6. LINEZOLID [Suspect]
     Active Substance: LINEZOLID
     Indication: Paraneoplastic pemphigus
     Dosage: UNK
     Dates: start: 2021
  7. VORICONAZOLE [Suspect]
     Active Substance: VORICONAZOLE
     Indication: Paraneoplastic pemphigus
     Dosage: UNK
     Dates: start: 2021
  8. OBINUTUZUMAB [Concomitant]
     Active Substance: OBINUTUZUMAB
     Indication: Follicular lymphoma stage IV
     Dosage: 100 MILLIGRAM (STARTING DOSE)
     Dates: start: 202109
  9. OBINUTUZUMAB [Concomitant]
     Active Substance: OBINUTUZUMAB
     Dosage: 1000 MILLIGRAM SECOND DOSE
     Dates: start: 202109
  10. BENDAMUSTINE [Concomitant]
     Active Substance: BENDAMUSTINE
     Indication: Follicular lymphoma stage IV
     Dosage: UNK
     Dates: start: 202109

REACTIONS (1)
  - Drug ineffective for unapproved indication [Fatal]
